APPROVED DRUG PRODUCT: CEFAZOLIN SODIUM
Active Ingredient: CEFAZOLIN SODIUM
Strength: EQ 1GM BASE/VIAL
Dosage Form/Route: INJECTABLE;INJECTION
Application: A201654 | Product #001
Applicant: HOSPIRA INC
Approved: Feb 3, 2016 | RLD: No | RS: No | Type: DISCN